FAERS Safety Report 6860154-4 (Version None)
Quarter: 2010Q3

REPORT INFORMATION
  Report Type: 
  Country: None (occurrence: None)
  Receive Date: 20100720
  Receipt Date: 20080119
  Transmission Date: 20110219
  Serious: Yes (Other)
  Sender: FDA-Public Use
  Company Number: US-PFIZER INC-2007091930

PATIENT
  Age: 65 Year
  Sex: Female
  Weight: 65.3 kg

DRUGS (5)
  1. CHANTIX [Suspect]
     Indication: SMOKING CESSATION THERAPY
     Dates: start: 20071102, end: 20071210
  2. DRUGS FOR TREATMENT OF PEPTIC ULCER [Suspect]
  3. FOSAMAX [Concomitant]
  4. HYZAAR [Concomitant]
     Indication: BLOOD PRESSURE ABNORMAL
  5. VYTORIN [Concomitant]
     Indication: HYPERTENSION

REACTIONS (16)
  - ABDOMINAL PAIN [None]
  - CONSTIPATION [None]
  - DIARRHOEA [None]
  - DRUG INEFFECTIVE [None]
  - DYSPEPSIA [None]
  - ERUCTATION [None]
  - FLATULENCE [None]
  - GASTROENTERITIS [None]
  - GASTROOESOPHAGEAL REFLUX DISEASE [None]
  - HYPOTENSION [None]
  - INSOMNIA [None]
  - MALAISE [None]
  - NAUSEA [None]
  - PARAESTHESIA [None]
  - PERIPHERAL COLDNESS [None]
  - WEIGHT INCREASED [None]
